FAERS Safety Report 24571638 (Version 1)
Quarter: 2024Q4

REPORT INFORMATION
  Report Type: Spontaneous
  Country: US (occurrence: US)
  Receive Date: 20241101
  Receipt Date: 20241101
  Transmission Date: 20250115
  Serious: No
  Sender: LEADING PHARMA LLC
  Company Number: US-LEADINGPHARMA-US-2024LEASPO00477

PATIENT

DRUGS (2)
  1. HYDROCHLOROTHIAZIDE [Suspect]
     Active Substance: HYDROCHLOROTHIAZIDE
     Indication: Product used for unknown indication
     Route: 065
  2. BETAHISTINE [Concomitant]
     Active Substance: BETAHISTINE
     Indication: Product used for unknown indication
     Route: 065

REACTIONS (5)
  - Hypersomnia [Unknown]
  - Fatigue [Unknown]
  - Confusional state [Unknown]
  - Dizziness [Unknown]
  - Drug ineffective [Unknown]
